FAERS Safety Report 13724516 (Version 1)
Quarter: 2017Q3

REPORT INFORMATION
  Report Type: Spontaneous
  Country: US (occurrence: US)
  Receive Date: 20170706
  Receipt Date: 20170706
  Transmission Date: 20171127
  Serious: No
  Sender: FDA-Public Use
  Company Number: US-BAUSCH-BL-2017-006153

PATIENT
  Age: 62 Year
  Sex: Male

DRUGS (1)
  1. GENTAMICIN SULFATE OPHTHALMIC SOLUTION USP 0.3% [Suspect]
     Active Substance: GENTAMICIN SULFATE
     Indication: EYE INFECTION FUNGAL
     Dosage: EVERY 4 TO 6 HOURS INTO BOTH EYES
     Route: 047

REACTIONS (3)
  - Off label use [Unknown]
  - Dry eye [Not Recovered/Not Resolved]
  - Eye irritation [Not Recovered/Not Resolved]
